FAERS Safety Report 11888995 (Version 1)
Quarter: 2016Q1

REPORT INFORMATION
  Report Type: Spontaneous
  Country: US (occurrence: None)
  Receive Date: 20160104
  Receipt Date: 20160104
  Transmission Date: 20160526
  Serious: No
  Sender: FDA-Public Use
  Company Number: None

PATIENT
  Age: 44 Year
  Sex: Female
  Weight: 102.06 kg

DRUGS (10)
  1. CAMBIA [Concomitant]
     Active Substance: DICLOFENAC POTASSIUM
  2. BUPROPION. [Concomitant]
     Active Substance: BUPROPION
  3. LOSARTAN. [Concomitant]
     Active Substance: LOSARTAN
  4. TOPAMAX [Concomitant]
     Active Substance: TOPIRAMATE
  5. ADVIL [Concomitant]
     Active Substance: IBUPROFEN
  6. ZOMIG [Concomitant]
     Active Substance: ZOLMITRIPTAN
  7. METFORMIN [Suspect]
     Active Substance: METFORMIN HYDROCHLORIDE
     Indication: DIABETES MELLITUS MANAGEMENT
     Dosage: 1 PILL ONCE DAILY TAKEN BY MOUTH
     Route: 048
     Dates: start: 20120101, end: 20160102
  8. VIIBRYD [Concomitant]
     Active Substance: VILAZODONE HYDROCHLORIDE
  9. ABILIFY [Concomitant]
     Active Substance: ARIPIPRAZOLE
  10. MELATONIN [Concomitant]
     Active Substance: MELATONIN

REACTIONS (2)
  - Product label on wrong product [None]
  - Drug dispensing error [None]

NARRATIVE: CASE EVENT DATE: 20160102
